FAERS Safety Report 24720287 (Version 1)
Quarter: 2024Q4

REPORT INFORMATION
  Report Type: Spontaneous
  Country: US (occurrence: US)
  Receive Date: 20241211
  Receipt Date: 20241211
  Transmission Date: 20250115
  Serious: No
  Sender: STALLERGENES
  Company Number: US-AIMMUNE THERAPEUTICS, INC.-2024AIMT00498

PATIENT
  Age: 7 Year
  Sex: Female

DRUGS (5)
  1. PALFORZIA [Suspect]
     Active Substance: PEANUT
     Indication: Food allergy
     Dosage: IDE(0.5MG-6MG), ONCE
  2. PALFORZIA [Suspect]
     Active Substance: PEANUT
     Dosage: 300 MG, 1X/DAY
  3. PALFORZIA [Suspect]
     Active Substance: PEANUT
     Dosage: 300 MG, ONCE, LAST DOSE PRIOR EVENT
  4. LORATADINE [Concomitant]
     Active Substance: LORATADINE
     Indication: Product used for unknown indication
     Dosage: UNK MG
  5. EPIPEN JR [Concomitant]
     Active Substance: EPINEPHRINE
     Indication: Product used for unknown indication
     Dosage: 0.13 UNK

REACTIONS (1)
  - Pyrexia [Recovered/Resolved]
